FAERS Safety Report 21100296 (Version 1)
Quarter: 2022Q3

REPORT INFORMATION
  Report Type: Spontaneous
  Country: GB (occurrence: GB)
  Receive Date: 20220719
  Receipt Date: 20220719
  Transmission Date: 20221027
  Serious: Yes (Other)
  Sender: FDA-Public Use
  Company Number: GB-INSUD PHARMA-2207GB02805

PATIENT

DRUGS (6)
  1. ACYCLOVIR [Suspect]
     Active Substance: ACYCLOVIR
     Indication: Herpes zoster necrotising retinopathy
     Dosage: 13 MILLIGRAM/KILOGRAM, TID
     Route: 042
  2. ACYCLOVIR [Suspect]
     Active Substance: ACYCLOVIR
     Dosage: SUSPENDED FOR 2 DAYS
  3. ACYCLOVIR [Suspect]
     Active Substance: ACYCLOVIR
     Dosage: RESUMED AT RENAL ADJUSTED DOSE
     Route: 042
  4. ACYCLOVIR [Suspect]
     Active Substance: ACYCLOVIR
     Dosage: 400 MILLIGRAM BD MAINTENANCE
     Route: 048
  5. FOSCARNET [Concomitant]
     Active Substance: FOSCARNET
     Indication: Herpes zoster necrotising retinopathy
     Dosage: 2.4 MG/0.1 ML INJECTED, RIGHT EYE
  6. FOSCARNET [Concomitant]
     Active Substance: FOSCARNET
     Dosage: 2.4 MG/0.1 ML INJECTED, LEFT EYE

REACTIONS (3)
  - Acute kidney injury [Recovering/Resolving]
  - Blood creatinine increased [Recovering/Resolving]
  - Glomerular filtration rate decreased [Recovering/Resolving]
